FAERS Safety Report 5319697-7 (Version None)
Quarter: 2007Q2

REPORT INFORMATION
  Report Type: 
  Country: None (occurrence: None)
  Receive Date: 20070502
  Receipt Date: 20070329
  Transmission Date: 20071010
  Serious: Yes (Hospitalization)
  Sender: FDA-Public Use
  Company Number: 2006JP002895

PATIENT
  Age: 76 Year
  Sex: Female
  Weight: 48.2 kg

DRUGS (9)
  1. TACROLIMUS [Suspect]
     Indication: RHEUMATOID ARTHRITIS
     Dosage: 1  MG, D, ORAL
     Route: 048
     Dates: start: 20060111
  2. PREDNISOLONE [Suspect]
     Indication: RHEUMATOID ARTHRITIS
     Dosage: 3 MG, D, ORAL
     Route: 048
  3. CALONAL [Concomitant]
  4. MAGMITT (MAGNESIUM OXIDE) TABLET [Concomitant]
  5. GASLON (IRSOGLADINE MALEATE) TABLET [Concomitant]
  6. CRAVIT (LEVOFLOXACIN) TABLET [Concomitant]
  7. GASMOTIN (MOSAPRIDE CITRATE) [Concomitant]
  8. MEILAX (ETHYL LOFLAZEPATE) TABLET [Concomitant]
  9. TETRAMIDE (MIANSERIN HYDROCHLORIDE) TABLET [Concomitant]

REACTIONS (3)
  - ADJUSTMENT DISORDER [None]
  - FEMUR FRACTURE [None]
  - PYELONEPHRITIS [None]
